FAERS Safety Report 5775307-6 (Version None)
Quarter: 2008Q2

REPORT INFORMATION
  Report Type: 
  Country: None (occurrence: None)
  Receive Date: 20080616
  Receipt Date: 20080616
  Transmission Date: 20081010
  Serious: Yes (Other)
  Sender: FDA-Public Use
  Company Number: None

PATIENT
  Age: 70 Year
  Sex: Male
  Weight: 100.2449 kg

DRUGS (2)
  1. LYRICA [Suspect]
     Indication: PAIN
     Dosage: 1 TAB BID PO
     Route: 048
     Dates: start: 20080402, end: 20080513
  2. LYRICA [Suspect]
     Indication: PERIPHERAL VASCULAR DISORDER
     Dosage: 1 TAB BID PO
     Route: 048
     Dates: start: 20080402, end: 20080513

REACTIONS (6)
  - DYSKINESIA [None]
  - FATIGUE [None]
  - FEELING ABNORMAL [None]
  - MALAISE [None]
  - NIGHTMARE [None]
  - SOMNOLENCE [None]
